FAERS Safety Report 24780903 (Version 3)
Quarter: 2025Q1

REPORT INFORMATION
  Report Type: Spontaneous
  Country: GB (occurrence: GB)
  Receive Date: 20241227
  Receipt Date: 20250325
  Transmission Date: 20250409
  Serious: Yes (Other)
  Sender: CSL BEHRING
  Company Number: GB-BEH-2024183221

PATIENT
  Sex: Female

DRUGS (5)
  1. PRIVIGEN [Suspect]
     Active Substance: HUMAN IMMUNOGLOBULIN G
     Indication: Immunodeficiency common variable
     Dosage: 35 G, Q3W, PRODUCT STRENGTH REPORTED AS 10 %
     Route: 042
  2. PRIVIGEN [Suspect]
     Active Substance: HUMAN IMMUNOGLOBULIN G
     Dosage: 35 G, Q3W (TOTAL (5G + 10G + 20G) 3 WEEKLY), PRODUCT STRENGTH REPORTED AS 100MG/ML (PRIVIGEN 20G/200
     Route: 042
     Dates: start: 20241016
  3. PRIVIGEN [Suspect]
     Active Substance: HUMAN IMMUNOGLOBULIN G
     Route: 065
  4. PRIVIGEN [Suspect]
     Active Substance: HUMAN IMMUNOGLOBULIN G
     Route: 065
  5. PRIVIGEN [Suspect]
     Active Substance: HUMAN IMMUNOGLOBULIN G
     Route: 065

REACTIONS (4)
  - Immunodeficiency [Unknown]
  - Immunoglobulins decreased [Unknown]
  - Poor venous access [Recovered/Resolved]
  - Wrong technique in product usage process [Recovered/Resolved]
